FAERS Safety Report 12527836 (Version 1)
Quarter: 2016Q3

REPORT INFORMATION
  Report Type: Spontaneous
  Country: US (occurrence: US)
  Receive Date: 20160705
  Receipt Date: 20160705
  Transmission Date: 20161109
  Serious: No
  Sender: FDA-Public Use
  Company Number: US-BAYER-2016-130677

PATIENT
  Sex: Female

DRUGS (1)
  1. MIRENA [Suspect]
     Active Substance: LEVONORGESTREL
     Dosage: DAILY DOSE 20 ?G
     Route: 015
     Dates: start: 201603

REACTIONS (2)
  - Rash generalised [Not Recovered/Not Resolved]
  - Swelling [Not Recovered/Not Resolved]
